FAERS Safety Report 5702837-5 (Version None)
Quarter: 2008Q2

REPORT INFORMATION
  Report Type: 
  Country: None (occurrence: None)
  Receive Date: 20080410
  Receipt Date: 20080410
  Transmission Date: 20081010
  Serious: Yes (Other)
  Sender: FDA-Public Use
  Company Number: None

PATIENT
  Age: 44 Year
  Sex: Female
  Weight: 50.8029 kg

DRUGS (2)
  1. SIMVASTATIN [Suspect]
     Indication: CORONARY ARTERY DISEASE
     Dosage: 40MG DAILY PO
     Route: 048
     Dates: start: 20080401, end: 20080408
  2. SIMVASTATIN [Suspect]
     Indication: HYPERLIPIDAEMIA
     Dosage: 40MG DAILY PO
     Route: 048
     Dates: start: 20080401, end: 20080408

REACTIONS (3)
  - ASTHENIA [None]
  - INFLUENZA [None]
  - PAIN [None]
